FAERS Safety Report 25204353 (Version 1)
Quarter: 2025Q2

REPORT INFORMATION
  Report Type: Other
  Country: DE (occurrence: DE)
  Receive Date: 20250416
  Receipt Date: 20250416
  Transmission Date: 20250717
  Serious: Yes (Other)
  Sender: Kanchan Healthcare
  Company Number: DE-Kanchan Healthcare INC-2174921

PATIENT
  Sex: Female

DRUGS (18)
  1. DEXAMETHASONE [Suspect]
     Active Substance: DEXAMETHASONE
     Indication: Follicular lymphoma
     Dates: start: 2013
  2. DEXAMETHASONE [Suspect]
     Active Substance: DEXAMETHASONE
     Indication: B-cell lymphoma
  3. RITUXIMAB [Suspect]
     Active Substance: RITUXIMAB
     Dates: start: 2013
  4. PREDNISOLONE [Suspect]
     Active Substance: PREDNISOLONE
     Dates: start: 201904
  5. FLUDARABINE [Suspect]
     Active Substance: FLUDARABINE PHOSPHATE
     Dates: start: 201907
  6. METHYLPREDNISOLONE SODIUM SUCCINATE [Suspect]
     Active Substance: METHYLPREDNISOLONE SODIUM SUCCINATE
     Dates: start: 201904
  7. FILGRASTIM [Suspect]
     Active Substance: FILGRASTIM
     Dates: start: 201904
  8. LEUCOVORIN [Suspect]
     Active Substance: LEUCOVORIN\LEUCOVORIN CALCIUM
     Dates: start: 201904
  9. MERCAPTOPURINE [Suspect]
     Active Substance: MERCAPTOPURINE
     Dates: start: 201904
  10. CYTARABINE [Suspect]
     Active Substance: CYTARABINE
     Dates: start: 201904
  11. METHOTREXATE [Suspect]
     Active Substance: METHOTREXATE
     Dates: start: 201904
  12. PREDNISONE [Suspect]
     Active Substance: PREDNISONE
     Dates: start: 201810
  13. VINCRISTINE SULFATE [Suspect]
     Active Substance: VINCRISTINE SULFATE
     Dates: start: 201810
  14. DOXORUBICIN HYDROCHLORIDE [Suspect]
     Active Substance: DOXORUBICIN HYDROCHLORIDE
     Dates: start: 201810
  15. CYCLOPHOSPHAMIDE [Suspect]
     Active Substance: CYCLOPHOSPHAMIDE
     Dates: start: 201810
  16. ETOPOSIDE [Suspect]
     Active Substance: ETOPOSIDE
     Dates: start: 2013
  17. CISPLATIN [Suspect]
     Active Substance: CISPLATIN
     Dates: start: 2013
  18. IFOSFAMIDE [Suspect]
     Active Substance: IFOSFAMIDE
     Dates: start: 2013

REACTIONS (2)
  - Myelodysplastic syndrome [Unknown]
  - Acute erythroid leukaemia [Unknown]
